FAERS Safety Report 8075661-9 (Version None)
Quarter: 2012Q1

REPORT INFORMATION
  Report Type: 
  Country: None (occurrence: None)
  Receive Date: 20120117
  Receipt Date: 20120110
  Transmission Date: 20120608
  Serious: Yes (Other)
  Sender: FDA-Public Use
  Company Number: 2012AP000063

PATIENT
  Age: 80 Year
  Sex: Female

DRUGS (13)
  1. ISOSORBIDE MONONITRATE [Concomitant]
  2. AMOXICILLIN [Concomitant]
  3. BISOPROLOL [Concomitant]
  4. KETOPROFEN [Concomitant]
  5. SIMVASTATIN [Concomitant]
  6. WARFARIN SODIUM [Concomitant]
  7. ALENDRONATE SODIUM [Suspect]
     Indication: PRODUCT USED FOR UNKNOWN INDICATION
     Dosage: PO
     Route: 048
     Dates: start: 20110901, end: 20111116
  8. ALLOPURINOL [Concomitant]
  9. ALBUTEROL SULFATE AUTOHALER [Concomitant]
  10. LOSARTAN POTASSIUM [Concomitant]
  11. CALCICHEW D3 (LEKOVIT CA) [Concomitant]
  12. FUROSEMIDE [Concomitant]
  13. ACETAMINOPHEN [Concomitant]

REACTIONS (3)
  - PAIN IN JAW [None]
  - OSTEONECROSIS OF JAW [None]
  - TOOTH LOSS [None]
